FAERS Safety Report 4884660-7 (Version None)
Quarter: 2006Q1

REPORT INFORMATION
  Report Type: 
  Country: None (occurrence: None)
  Receive Date: 20060117
  Receipt Date: 20060106
  Transmission Date: 20060701
  Serious: Yes (Disabling, Other)
  Sender: FDA-Public Use
  Company Number: 2005114475

PATIENT
  Age: 54 Year
  Sex: Male

DRUGS (6)
  1. VIAGRA [Suspect]
     Indication: ERECTILE DYSFUNCTION
     Dosage: (100 MG)
     Dates: end: 20050101
  2. HYDROCHLOROTHIAZIDE [Concomitant]
  3. NORVASC [Concomitant]
  4. LIPITOR [Concomitant]
  5. CAPTOPRIL [Concomitant]
  6. ALPHAGAN [Concomitant]

REACTIONS (20)
  - BLINDNESS UNILATERAL [None]
  - BLOOD CHOLESTEROL INCREASED [None]
  - BLOOD CREATINE INCREASED [None]
  - BLOOD UREA INCREASED [None]
  - CHALAZION [None]
  - DIABETES MELLITUS INADEQUATE CONTROL [None]
  - DIZZINESS [None]
  - EYE PAIN [None]
  - GLYCOSYLATED HAEMOGLOBIN INCREASED [None]
  - INFUSION SITE PAIN [None]
  - INTRAOCULAR PRESSURE INCREASED [None]
  - IRITIS [None]
  - LOW DENSITY LIPOPROTEIN INCREASED [None]
  - MACULOPATHY [None]
  - OPTIC ATROPHY [None]
  - OPTIC ISCHAEMIC NEUROPATHY [None]
  - RETINAL ANEURYSM [None]
  - RETINAL SCAR [None]
  - SCOTOMA [None]
  - VITREOUS HAEMORRHAGE [None]
